FAERS Safety Report 11273700 (Version 1)
Quarter: 2015Q3

REPORT INFORMATION
  Report Type: Spontaneous
  Country: NL (occurrence: NL)
  Receive Date: 20150715
  Receipt Date: 20150715
  Transmission Date: 20151125
  Serious: Yes (Other)
  Sender: FDA-Public Use
  Company Number: NL-JNJFOC-20150710509

PATIENT

DRUGS (1)
  1. INFLIXIMAB, RECOMBINANT [Suspect]
     Active Substance: INFLIXIMAB
     Indication: SARCOIDOSIS
     Dosage: AT WEEKS 0 AND 2 AND THEN EVERY 4 WEEKS OVER A PERIOD OF 6 MONTHS.
     Route: 042

REACTIONS (2)
  - Product use issue [Unknown]
  - Peritonitis [Unknown]
